FAERS Safety Report 7418955-X (Version None)
Quarter: 2011Q2

REPORT INFORMATION
  Report Type: 
  Country: None (occurrence: None)
  Receive Date: 20110415
  Receipt Date: 20110411
  Transmission Date: 20111010
  Serious: Yes (Other)
  Sender: FDA-Public Use
  Company Number: US-BAYER-2011-032031

PATIENT
  Age: 46 Year
  Sex: Female

DRUGS (1)
  1. YASMIN [Suspect]
     Dosage: UNK
     Dates: start: 20040301, end: 20090831

REACTIONS (5)
  - PAIN [None]
  - EMOTIONAL DISTRESS [None]
  - INJURY [None]
  - GALLBLADDER INJURY [None]
  - HEPATIC NEOPLASM [None]
